FAERS Safety Report 17898508 (Version 1)
Quarter: 2020Q2

REPORT INFORMATION
  Report Type: Spontaneous
  Country: BR (occurrence: BR)
  Receive Date: 20200615
  Receipt Date: 20200615
  Transmission Date: 20200714
  Serious: Yes (Other)
  Sender: FDA-Public Use
  Company Number: BR-JNJFOC-20200608969

PATIENT
  Age: 25 Year
  Sex: Male
  Weight: 125 kg

DRUGS (4)
  1. TREMFYA [Suspect]
     Active Substance: GUSELKUMAB
     Indication: PSORIASIS
     Dosage: WEEK 0
     Route: 065
  2. STELARA [Suspect]
     Active Substance: USTEKINUMAB
     Indication: PSORIASIS
     Dosage: WEEKS 0, 4 AND THEN EVERY 12 WEEKS
     Route: 058
  3. TREMFYA [Suspect]
     Active Substance: GUSELKUMAB
     Route: 065
  4. TREMFYA [Suspect]
     Active Substance: GUSELKUMAB
     Dosage: WEEK 4
     Route: 065

REACTIONS (2)
  - Metabolic surgery [Unknown]
  - Psoriasis [Recovered/Resolved]
